FAERS Safety Report 5310552-5 (Version None)
Quarter: 2007Q1

REPORT INFORMATION
  Report Type: 
  Country: None (occurrence: None)
  Receive Date: 20070201
  Receipt Date: 20061020
  Transmission Date: 20070707
  Serious: No
  Sender: FDA-Public Use
  Company Number: 257905

PATIENT
  Age: 50 Year
  Sex: Male
  Weight: 117.9 kg

DRUGS (4)
  1. LEVEMIR [Suspect]
     Indication: INSULIN-REQUIRING TYPE II DIABETES MELLITUS
     Dosage: 30 IU, BID, SUBCUTANEOUS
     Route: 058
     Dates: start: 20061015
  2. NOVOLOG [Concomitant]
  3. NOVOFINE 30 (NEEDLE) [Concomitant]
  4. NOVOFINE 31 (NEEDLE) [Concomitant]

REACTIONS (1)
  - INJECTION SITE MASS [None]
